FAERS Safety Report 7390455-5 (Version None)
Quarter: 2011Q2

REPORT INFORMATION
  Report Type: 
  Country: None (occurrence: None)
  Receive Date: 20110401
  Receipt Date: 20110328
  Transmission Date: 20111010
  Serious: Yes (Hospitalization)
  Sender: FDA-Public Use
  Company Number: US-MERCK-1103USA00621

PATIENT
  Age: 32 Year
  Sex: Female

DRUGS (1)
  1. INVANZ [Suspect]
     Indication: GASTROINTESTINAL INFECTION
     Route: 042

REACTIONS (1)
  - HAEMOLYTIC ANAEMIA [None]
